FAERS Safety Report 8517584-4 (Version None)
Quarter: 2012Q3

REPORT INFORMATION
  Report Type: 
  Country: None (occurrence: None)
  Receive Date: 20120718
  Receipt Date: 20120626
  Transmission Date: 20120928
  Serious: Yes (Death, Hospitalization)
  Sender: FDA-Public Use
  Company Number: DE-ROCHE-1080632

PATIENT
  Sex: Male

DRUGS (8)
  1. NORVIR [Concomitant]
     Dates: start: 20111123
  2. COPEGUS [Suspect]
     Indication: HEPATITIS C
     Route: 048
     Dates: start: 20120223, end: 20120608
  3. PEGASYS [Suspect]
     Indication: HEPATITIS C
     Route: 058
     Dates: start: 20120223, end: 20120608
  4. METOCLOPRAMIDE [Concomitant]
     Dates: start: 20111027
  5. TRUVADA [Concomitant]
     Dates: start: 20110705
  6. COTRIM D.S. [Concomitant]
     Dates: start: 20110629
  7. REYATAZ [Concomitant]
     Dates: start: 20120202
  8. DACLATASVIR [Suspect]
     Indication: HEPATITIS C
     Route: 048
     Dates: start: 20120223, end: 20120608

REACTIONS (2)
  - CARDIAC ARREST [None]
  - PANCYTOPENIA [None]
